FAERS Safety Report 14078400 (Version 1)
Quarter: 2017Q4

REPORT INFORMATION
  Report Type: Spontaneous
  Country: US (occurrence: None)
  Receive Date: 20171012
  Receipt Date: 20171012
  Transmission Date: 20180321
  Serious: No
  Sender: FDA-Public Use
  Company Number: None

PATIENT

DRUGS (3)
  1. PREDNISOLONE ACETATE. [Suspect]
     Active Substance: PREDNISOLONE ACETATE
  2. CARVEDIOL [Suspect]
     Active Substance: CARVEDILOL
  3. DURICEF [Suspect]
     Active Substance: CEFADROXIL

REACTIONS (4)
  - Diarrhoea [None]
  - Drug dispensed to wrong patient [None]
  - Wrong patient received medication [None]
  - Lethargy [None]
